FAERS Safety Report 10832076 (Version 1)
Quarter: 2015Q1

REPORT INFORMATION
  Report Type: Spontaneous
  Country: US (occurrence: US)
  Receive Date: 20150219
  Receipt Date: 20150219
  Transmission Date: 20150721
  Serious: Yes (Other)
  Sender: FDA-Public Use
  Company Number: PHEH2015US003016

PATIENT
  Sex: Male

DRUGS (5)
  1. METHYLPREDNISOLONE. [Concomitant]
     Active Substance: METHYLPREDNISOLONE
     Indication: PRODUCT USED FOR UNKNOWN INDICATION
     Dosage: 1 DF, 5 DAYS
     Route: 048
  2. BACLOFEN. [Concomitant]
     Active Substance: BACLOFEN
     Indication: PRODUCT USED FOR UNKNOWN INDICATION
     Dosage: 10 MG, QD
     Route: 065
  3. HYDROCODONE BITARTRATE AND ACETAMINOPHEN [Concomitant]
     Active Substance: ACETAMINOPHEN\HYDROCODONE BITARTRATE
     Indication: PRODUCT USED FOR UNKNOWN INDICATION
     Dosage: 2 DF, Q6H (5 MG HYDR AND 325 MG PARA FOR TWO WEEKS)
     Route: 048
  4. TIZANIDINE HCL [Concomitant]
     Active Substance: TIZANIDINE HYDROCHLORIDE
     Indication: PRODUCT USED FOR UNKNOWN INDICATION
     Dosage: 2 MG, TID
     Route: 065
  5. TEGRETOL [Suspect]
     Active Substance: CARBAMAZEPINE
     Indication: PRODUCT USED FOR UNKNOWN INDICATION
     Dosage: 400 MG, BID
     Route: 048

REACTIONS (83)
  - Seizure [Unknown]
  - Tendon rupture [Unknown]
  - Aphthous stomatitis [Unknown]
  - Ligament disorder [Unknown]
  - Burning sensation [Unknown]
  - Musculoskeletal pain [Unknown]
  - Feeling abnormal [Unknown]
  - Nasopharyngitis [Unknown]
  - Arthralgia [Unknown]
  - Asthenia [Unknown]
  - Lymphadenopathy [Unknown]
  - Mouth ulceration [Unknown]
  - Lip dry [Unknown]
  - Skin lesion [Unknown]
  - Groin pain [Unknown]
  - Hypotonia [Unknown]
  - Muscle strain [Unknown]
  - Muscle spasticity [Unknown]
  - Cyst [Unknown]
  - Cough [Unknown]
  - Rash [Unknown]
  - Asphyxia [Unknown]
  - Lacunar infarction [Unknown]
  - Optic nerve injury [Unknown]
  - Gingival ulceration [Unknown]
  - Visual impairment [Unknown]
  - Strabismus [Unknown]
  - Oropharyngeal pain [Unknown]
  - Erythema [Unknown]
  - Myalgia [Unknown]
  - Headache [Unknown]
  - Otitis media acute [Not Recovered/Not Resolved]
  - Pharyngeal erythema [Unknown]
  - Muscle disorder [Unknown]
  - Joint contracture [Unknown]
  - Pharyngitis [Not Recovered/Not Resolved]
  - Nerve injury [Unknown]
  - Muscular weakness [Unknown]
  - Abdominal pain [Unknown]
  - Pyrexia [Unknown]
  - Encephalomalacia [Unknown]
  - Pain [Unknown]
  - Tenderness [Unknown]
  - Dehydration [Unknown]
  - Tachycardia [Unknown]
  - Hip deformity [Unknown]
  - Fibromyalgia [Unknown]
  - Nasal congestion [Unknown]
  - Ear infection [Unknown]
  - Dysarthria [Unknown]
  - Epilepsy [Unknown]
  - Encephalopathy [Unknown]
  - Amnesia [Unknown]
  - Pain in extremity [Unknown]
  - Seminal vesicular disorder [Unknown]
  - Ear pain [Unknown]
  - Balance disorder [Unknown]
  - Pelvic deformity [Unknown]
  - Joint stiffness [Unknown]
  - Influenza [Unknown]
  - Ataxia [Unknown]
  - Muscle spasms [Unknown]
  - Mild mental retardation [Unknown]
  - Paresis [Unknown]
  - Cardiac murmur [Unknown]
  - Pain of skin [Unknown]
  - Skin abrasion [Unknown]
  - Electrolyte imbalance [Unknown]
  - Tendon injury [Unknown]
  - Cerumen impaction [Unknown]
  - Poor quality sleep [Unknown]
  - Fall [Unknown]
  - Rhinorrhoea [Unknown]
  - Stomatitis [Unknown]
  - Fatigue [Unknown]
  - Motor dysfunction [Unknown]
  - Oral mucosal blistering [Unknown]
  - Joint range of motion decreased [Unknown]
  - Radicular syndrome [Unknown]
  - Bronchitis [Unknown]
  - Hearing impaired [Unknown]
  - Tremor [Unknown]
  - Gait disturbance [Unknown]
